FAERS Safety Report 4876707-9 (Version None)
Quarter: 2006Q1

REPORT INFORMATION
  Report Type: 
  Country: None (occurrence: None)
  Receive Date: 20060110
  Receipt Date: 20050323
  Transmission Date: 20060701
  Serious: Yes (Hospitalization, Other)
  Sender: FDA-Public Use
  Company Number: US-MERCK-0503USA04026

PATIENT
  Age: 42 Year
  Sex: Female
  Weight: 143 kg

DRUGS (3)
  1. VIOXX [Suspect]
     Route: 048
  2. ZOLOFT [Concomitant]
     Route: 065
  3. NITROGLYCERIN [Concomitant]
     Route: 065

REACTIONS (21)
  - ARTHRALGIA [None]
  - ATELECTASIS [None]
  - BACK PAIN [None]
  - BLOOD PRESSURE ABNORMAL [None]
  - BRONCHITIS ACUTE [None]
  - CHEST PAIN [None]
  - CONVERSION DISORDER [None]
  - CONVULSION [None]
  - DYSFUNCTIONAL UTERINE BLEEDING [None]
  - FALL [None]
  - GASTRIC ULCER [None]
  - GASTRITIS [None]
  - GASTROINTESTINAL HAEMORRHAGE [None]
  - GASTROOESOPHAGEAL REFLUX DISEASE [None]
  - HEADACHE [None]
  - HYPERTENSION [None]
  - IRON DEFICIENCY ANAEMIA [None]
  - MYOCARDIAL INFARCTION [None]
  - SINUSITIS [None]
  - SYNCOPE [None]
  - VITAMIN B12 DEFICIENCY [None]
